FAERS Safety Report 23388495 (Version 1)
Quarter: 2024Q1

REPORT INFORMATION
  Report Type: Report from Study
  Country: RU (occurrence: None)
  Receive Date: 20240110
  Receipt Date: 20240110
  Transmission Date: 20240410
  Serious: Yes (Hospitalization, Other)
  Sender: FDA-Public Use
  Company Number: 2018SF30447

PATIENT
  Age: 64 Year
  Sex: Male
  Weight: 90 kg

DRUGS (4)
  1. BRILINTA [Suspect]
     Active Substance: TICAGRELOR
     Indication: Myocardial infarction
     Route: 048
     Dates: start: 2015
  2. ATORVASTATIN CALCIUM [Concomitant]
     Active Substance: ATORVASTATIN CALCIUM
  3. BISOPROLOL FUMARATE [Concomitant]
     Active Substance: BISOPROLOL FUMARATE
  4. PERINDOPRIL [Concomitant]
     Active Substance: PERINDOPRIL

REACTIONS (6)
  - Vascular stent occlusion [Recovered/Resolved]
  - Abdominal pain upper [Recovered/Resolved]
  - Haemorrhage [Recovered/Resolved]
  - Dizziness [Recovered/Resolved]
  - Influenza [Recovering/Resolving]
  - Intentional product misuse [Not Recovered/Not Resolved]

NARRATIVE: CASE EVENT DATE: 20150101
